FAERS Safety Report 6214698-9 (Version None)
Quarter: 2009Q2

REPORT INFORMATION
  Report Type: 
  Country: None (occurrence: None)
  Receive Date: 20090604
  Receipt Date: 20090522
  Transmission Date: 20091009
  Serious: Yes (Other)
  Sender: FDA-Public Use
  Company Number: US-PFIZER INC-2009218617

PATIENT
  Sex: Female

DRUGS (6)
  1. ALPRAZOLAM [Suspect]
     Dosage: UNK
     Route: 048
  2. CHANTIX [Suspect]
  3. AMBIEN [Concomitant]
     Dosage: 10 MG, 1X/DAY
     Route: 048
  4. PAXIL [Concomitant]
     Dosage: 40 MG, UNK
  5. ALLEGRA [Concomitant]
     Dosage: 180 MG, 1X/DAY
     Route: 048
  6. SEROQUEL [Concomitant]
     Dosage: 50 MG, 1X/DAY
     Route: 048

REACTIONS (13)
  - ACTIVITIES OF DAILY LIVING IMPAIRED [None]
  - ANXIETY [None]
  - FATIGUE [None]
  - HALLUCINATION [None]
  - INSOMNIA [None]
  - IRRITABILITY [None]
  - MAJOR DEPRESSION [None]
  - MANIA [None]
  - NIGHTMARE [None]
  - PANIC ATTACK [None]
  - RESTLESSNESS [None]
  - SLUGGISHNESS [None]
  - SUICIDAL IDEATION [None]
